FAERS Safety Report 16138348 (Version 1)
Quarter: 2019Q2

REPORT INFORMATION
  Report Type: Spontaneous
  Country: FR (occurrence: FR)
  Receive Date: 20190401
  Receipt Date: 20190401
  Transmission Date: 20190711
  Serious: Yes (Hospitalization)
  Sender: FDA-Public Use
  Company Number: FR-GLAXOSMITHKLINE-FR2019054405

PATIENT
  Age: 38 Year
  Sex: Female
  Weight: 90 kg

DRUGS (3)
  1. VALPROATE NA TEVA [Suspect]
     Active Substance: VALPROATE SODIUM
     Indication: EPILEPSY
  2. LAMICTAL [Suspect]
     Active Substance: LAMOTRIGINE
     Indication: EPILEPSY
     Dosage: 25 MG / DAY FOR 1 WEEK, 50 MG / DAY FOR 1 WEEK, 75 MG / DAY FOR 1 WEEK, 100 MG / DAY
     Route: 048
     Dates: start: 20181106, end: 20181207
  3. VALPROATE NA TEVA [Suspect]
     Active Substance: VALPROATE SODIUM
     Indication: EPILEPSY
     Dosage: 1250 MG / DAY FOR 1 MONTH, 1000 MG / DAY FOR 1 WEEK, 500 MG FOR 1 WEEK, 250 MG / DAY
     Route: 048
     Dates: start: 2012

REACTIONS (2)
  - Headache [Recovered/Resolved]
  - Meningism [Recovered/Resolved]

NARRATIVE: CASE EVENT DATE: 201811
